FAERS Safety Report 9352071 (Version 3)
Quarter: 2013Q2

REPORT INFORMATION
  Report Type: Report from Study
  Country: JP (occurrence: JP)
  Receive Date: 20130617
  Receipt Date: 20130625
  Transmission Date: 20140414
  Serious: Yes (Hospitalization)
  Sender: FDA-Public Use
  Company Number: JP-GILEAD-2012-0056282

PATIENT
  Age: 74 Year
  Sex: Female

DRUGS (21)
  1. AMBRISENTAN [Suspect]
     Indication: PULMONARY HYPERTENSION
     Dosage: 2.5MG TWICE PER DAY
     Route: 048
     Dates: start: 20121010, end: 20130430
  2. AMBRISENTAN [Suspect]
     Dosage: 2.5MG PER DAY
     Route: 048
     Dates: start: 20120530, end: 20121009
  3. AMBRISENTAN [Suspect]
     Dosage: 5MG PER DAY
     Route: 048
     Dates: start: 20120315, end: 20120529
  4. REVATIO [Suspect]
     Indication: PULMONARY ARTERIAL HYPERTENSION
     Dosage: 20MG THREE TIMES PER DAY
     Route: 048
     Dates: start: 20120309
  5. CARELOAD [Suspect]
     Indication: PULMONARY ARTERIAL HYPERTENSION
     Dosage: 180MCG TWICE PER DAY
     Route: 048
  6. NORVASC [Suspect]
     Indication: BLOOD PRESSURE DECREASED
     Route: 048
     Dates: end: 20120721
  7. WARFARIN [Suspect]
     Indication: THROMBOSIS PROPHYLAXIS
     Route: 048
  8. WARFARIN [Suspect]
     Route: 048
  9. FUROSEMIDE [Suspect]
     Indication: PRODUCT USED FOR UNKNOWN INDICATION
     Route: 048
  10. FUROSEMIDE [Suspect]
     Route: 048
  11. VASOLAN [Suspect]
     Indication: PRODUCT USED FOR UNKNOWN INDICATION
     Route: 048
  12. ALDACTONE A [Suspect]
     Indication: PRODUCT USED FOR UNKNOWN INDICATION
     Route: 048
  13. ALDACTONE A [Suspect]
     Route: 048
  14. PARIET [Suspect]
     Indication: PRODUCT USED FOR UNKNOWN INDICATION
     Route: 048
  15. PARIET [Suspect]
     Route: 048
  16. URSO [Suspect]
     Indication: PRODUCT USED FOR UNKNOWN INDICATION
     Route: 048
  17. PREDNISOLONE [Suspect]
     Indication: PRODUCT USED FOR UNKNOWN INDICATION
     Route: 048
  18. PREDNISOLONE [Suspect]
     Route: 048
  19. BERAPROST SODIUM [Concomitant]
     Route: 065
  20. BERAPROST SODIUM [Concomitant]
     Route: 065
  21. TRACLEER                           /01587701/ [Concomitant]
     Indication: HEPATIC FUNCTION ABNORMAL
     Route: 048
     Dates: end: 20111125

REACTIONS (4)
  - Cardiac failure [Not Recovered/Not Resolved]
  - Fluid retention [Recovering/Resolving]
  - Liver disorder [Recovering/Resolving]
  - Transaminases increased [Recovered/Resolved]
